FAERS Safety Report 13747556 (Version 2)
Quarter: 2017Q3

REPORT INFORMATION
  Report Type: Spontaneous
  Country: US (occurrence: US)
  Receive Date: 20170712
  Receipt Date: 20170822
  Transmission Date: 20171127
  Serious: No
  Sender: FDA-Public Use
  Company Number: GXBR2017US002164

PATIENT
  Age: 62 Year
  Sex: Female

DRUGS (2)
  1. AMOXICILLIN AND CLAVULANATE POTASSIUM TABLETS USP [Suspect]
     Active Substance: AMOXICILLIN\CLAVULANATE POTASSIUM
     Indication: GASTROINTESTINAL DISORDER
     Dosage: 1 DF, BID
     Route: 048
  2. METRONIDAZOL [Concomitant]
     Active Substance: METRONIDAZOLE
     Indication: GASTROINTESTINAL DISORDER
     Dosage: 500 MG, TID
     Route: 048

REACTIONS (2)
  - Product quality issue [Unknown]
  - Vomiting [Unknown]
